FAERS Safety Report 7008188-3 (Version None)
Quarter: 2010Q3

REPORT INFORMATION
  Report Type: 
  Country: None (occurrence: None)
  Receive Date: 20100922
  Receipt Date: 20100917
  Transmission Date: 20110219
  Serious: Yes (Hospitalization, Other)
  Sender: FDA-Public Use
  Company Number: JP-ROXANE LABORATORIES, INC.-2010-RO-01246RO

PATIENT
  Age: 52 Year
  Sex: Male
  Weight: 98 kg

DRUGS (2)
  1. AMLODIPINE [Suspect]
     Indication: HYPERTENSION
     Dosage: 5 MG
  2. LOXOPROFEN [Suspect]
     Indication: ARTHRALGIA
     Dosage: 120 MG

REACTIONS (3)
  - JAUNDICE [None]
  - LIVER DISORDER [None]
  - PRURITUS [None]
